FAERS Safety Report 9698093 (Version 1)
Quarter: 2013Q4

REPORT INFORMATION
  Report Type: Report from Study
  Country: ES (occurrence: ES)
  Receive Date: 20131120
  Receipt Date: 20131120
  Transmission Date: 20140711
  Serious: Yes (Hospitalization)
  Sender: FDA-Public Use
  Company Number: ES-JNJFOC-20131108268

PATIENT
  Age: 28 Year
  Sex: Male

DRUGS (5)
  1. RISPERIDONE [Suspect]
     Indication: SCHIZOPHRENIA, PARANOID TYPE
     Route: 065
  2. OLANZAPINE [Suspect]
     Indication: SCHIZOPHRENIA, PARANOID TYPE
     Dosage: 0-0-1
     Route: 065
  3. RIVOTRIL [Suspect]
     Indication: SCHIZOPHRENIA, PARANOID TYPE
     Route: 065
  4. RIVOTRIL [Suspect]
     Indication: SCHIZOPHRENIA, PARANOID TYPE
     Route: 065
  5. FLUNITRAZEPAM [Suspect]
     Indication: SCHIZOPHRENIA, PARANOID TYPE
     Dosage: 1 (IF HE DOES NOT SLEEP)
     Route: 065

REACTIONS (5)
  - Irritability [Unknown]
  - Restlessness [Unknown]
  - Speech disorder [Unknown]
  - Narcissistic personality disorder [Unknown]
  - Soliloquy [Unknown]
